FAERS Safety Report 5639175-5 (Version None)
Quarter: 2008Q1

REPORT INFORMATION
  Report Type: 
  Country: None (occurrence: None)
  Receive Date: 20080131
  Receipt Date: 20071017
  Transmission Date: 20080703
  Serious: Yes (Other)
  Sender: FDA-Public Use
  Company Number: 163-21880-07100971

PATIENT
  Age: 56 Year
  Sex: Male

DRUGS (1)
  1. REVLIMID [Suspect]
     Indication: MULTIPLE MYELOMA
     Dosage: 20 MG, X21 DAYS EVERY 28 DAYS, ORAL
     Route: 048
     Dates: start: 20070801, end: 20071017

REACTIONS (4)
  - DYSPNOEA [None]
  - RED BLOOD CELL COUNT DECREASED [None]
  - THROMBOSIS [None]
  - WHITE BLOOD CELL COUNT DECREASED [None]
